FAERS Safety Report 15954750 (Version 2)
Quarter: 2019Q1

REPORT INFORMATION
  Report Type: Report from Study
  Country: None (occurrence: ES)
  Receive Date: 20190213
  Receipt Date: 20190215
  Transmission Date: 20190417
  Serious: Yes (Hospitalization)
  Sender: FDA-Public Use
  Company Number: ES-ABBVIE-19S-144-2658303-00

PATIENT
  Age: 80 Year
  Sex: Male
  Weight: 56 kg

DRUGS (2)
  1. DUODOPA [Suspect]
     Active Substance: CARBIDOPA\LEVODOPA
     Indication: PARKINSON^S DISEASE
     Route: 050
     Dates: start: 20180621
  2. DUODOPA [Suspect]
     Active Substance: CARBIDOPA\LEVODOPA
     Dosage: 4-5 EXTRA DOSES/DAY
     Route: 050

REACTIONS (2)
  - Pneumonia [Recovered/Resolved]
  - Freezing phenomenon [Recovering/Resolving]

NARRATIVE: CASE EVENT DATE: 201901
